FAERS Safety Report 12675181 (Version 2)
Quarter: 2016Q4

REPORT INFORMATION
  Report Type: Spontaneous
  Country: US (occurrence: US)
  Receive Date: 20160823
  Receipt Date: 20161012
  Transmission Date: 20170207
  Serious: No
  Sender: FDA-Public Use
  Company Number: US-009507513-1608USA009332

PATIENT

DRUGS (3)
  1. EMEND [Suspect]
     Active Substance: APREPITANT
     Dosage: UNK
     Dates: start: 20160816
  2. EMEND [Suspect]
     Active Substance: APREPITANT
     Dosage: UNK
     Dates: start: 20160816
  3. EMEND [Suspect]
     Active Substance: APREPITANT
     Dosage: UNK
     Dates: start: 20160816

REACTIONS (2)
  - Incorrect product storage [Unknown]
  - No adverse event [Unknown]

NARRATIVE: CASE EVENT DATE: 20160816
